FAERS Safety Report 21544226 (Version 4)
Quarter: 2024Q3

REPORT INFORMATION
  Report Type: Spontaneous
  Country: US (occurrence: US)
  Receive Date: 20221102
  Receipt Date: 20240823
  Transmission Date: 20241016
  Serious: Yes (Hospitalization, Other)
  Sender: TEVA
  Company Number: US-TEVA-2022-US-2822620

PATIENT
  Age: 68 Year
  Sex: Female

DRUGS (14)
  1. HYDROCHLOROTHIAZIDE\VALSARTAN [Suspect]
     Active Substance: HYDROCHLOROTHIAZIDE\VALSARTAN
     Indication: Hypertension
     Dosage: DOSAGE TEXT: 320-25 MG, VALSARTAN/HYDROCHLOROTHIAZIDE-ACTAVIS
     Route: 048
     Dates: start: 20171226, end: 20180326
  2. HYDROCHLOROTHIAZIDE\VALSARTAN [Suspect]
     Active Substance: HYDROCHLOROTHIAZIDE\VALSARTAN
     Indication: Hypertension
     Dosage: DOSAGE TEXT: 320/25 MG, VALSARTAN/HYDROCHLOROTHIAZIDE-ALEMBIC
     Route: 048
     Dates: start: 20170818, end: 20171116
  3. HYDROCHLOROTHIAZIDE\VALSARTAN [Suspect]
     Active Substance: HYDROCHLOROTHIAZIDE\VALSARTAN
     Indication: Hypertension
     Dosage: DOSAGE TEXT: 320/25 MG, VALSARTAN/HYDROCHLOROTHIAZIDE-ALEMBIC
     Route: 048
     Dates: start: 20180423, end: 20190205
  4. HYDROCHLOROTHIAZIDE\VALSARTAN [Suspect]
     Active Substance: HYDROCHLOROTHIAZIDE\VALSARTAN
     Indication: Hypertension
     Dosage: DOSAGE TEXT: 320/25 MG, VALSARTAN/HYDROCHLOROTHIAZIDE-MACLEODS
     Route: 048
     Dates: start: 20190226, end: 20190527
  5. HYDROCHLOROTHIAZIDE\VALSARTAN [Suspect]
     Active Substance: HYDROCHLOROTHIAZIDE\VALSARTAN
     Indication: Hypertension
     Dosage: DOSAGE TEXT: 320/25 MG, VALSARTAN/HYDROCHLOROTHIAZIDE-MACLEODS
     Route: 048
     Dates: start: 20190724, end: 20200519
  6. HYDROCHLOROTHIAZIDE\VALSARTAN [Suspect]
     Active Substance: HYDROCHLOROTHIAZIDE\VALSARTAN
     Indication: Hypertension
     Dosage: DOSAGE TEXT: 320/25 MG, VALSARTAN/HYDROCHLOROTHIAZIDE-AUROBINDO
     Route: 048
     Dates: start: 20170413, end: 20170712
  7. CELEXA [Concomitant]
     Active Substance: CITALOPRAM HYDROBROMIDE
     Indication: Depression
     Route: 048
     Dates: start: 2018
  8. PRILOSEC [Concomitant]
     Active Substance: OMEPRAZOLE MAGNESIUM
     Indication: Gastrooesophageal reflux disease
     Dosage: DELAYED RELEASE
     Route: 048
     Dates: start: 2019
  9. VITAMIN D3 [Concomitant]
     Active Substance: CHOLECALCIFEROL
     Indication: Fatigue
     Route: 048
     Dates: start: 2018
  10. VITAMIN D3 [Concomitant]
     Active Substance: CHOLECALCIFEROL
     Indication: Fatigue
     Dosage: VITAMIN D3 10 MCG (400 UNIT) TABLET
     Route: 048
  11. MELATONIN [Concomitant]
     Active Substance: MELATONIN
     Indication: Insomnia
     Dosage: DOSAGE TEXT: EVERY NIGHT AT BEDTIME
     Route: 048
     Dates: start: 2019, end: 2022
  12. MELATONIN [Concomitant]
     Active Substance: MELATONIN
     Indication: Insomnia
     Dates: end: 20221005
  13. MAGNESIUM OXIDE [Concomitant]
     Active Substance: MAGNESIUM OXIDE
     Indication: Insomnia
     Dosage: DOSAGE TEXT: 1 QPM
     Route: 048
     Dates: start: 2018, end: 20221115
  14. DIOVAN HCT [Suspect]
     Active Substance: HYDROCHLOROTHIAZIDE\VALSARTAN
     Indication: Hypertension
     Dosage: 320-25 MG PER TABLET
     Route: 048

REACTIONS (1)
  - Colorectal cancer stage II [Unknown]
